FAERS Safety Report 20662223 (Version 2)
Quarter: 2022Q2

REPORT INFORMATION
  Report Type: Spontaneous
  Country: US (occurrence: US)
  Receive Date: 20220401
  Receipt Date: 20220421
  Transmission Date: 20220721
  Serious: No
  Sender: FDA-Public Use
  Company Number: US-BAUSCH-BL-2022-007752

PATIENT
  Age: 18 Year
  Sex: Male
  Weight: 77.180 kg

DRUGS (1)
  1. IMIQUIMOD [Suspect]
     Active Substance: IMIQUIMOD
     Indication: Ill-defined disorder
     Route: 061
     Dates: end: 20220321

REACTIONS (3)
  - Wound [Not Recovered/Not Resolved]
  - Thermal burn [Not Recovered/Not Resolved]
  - Scab [Not Recovered/Not Resolved]
